FAERS Safety Report 9763225 (Version 1)
Quarter: 2013Q4

REPORT INFORMATION
  Report Type: Spontaneous
  Country: US (occurrence: US)
  Receive Date: 20131216
  Receipt Date: 20131216
  Transmission Date: 20140711
  Serious: No
  Sender: FDA-Public Use
  Company Number: US-BIOGENIDEC-2013BI109708

PATIENT
  Sex: Female

DRUGS (14)
  1. TECFIDERA [Suspect]
     Indication: MULTIPLE SCLEROSIS
  2. ZANTAC [Concomitant]
  3. IMODIUM ADVANCED [Concomitant]
  4. OPANA [Concomitant]
  5. ABILIFY [Concomitant]
  6. WELLBUTRIN [Concomitant]
  7. TOPAMAX [Concomitant]
  8. AMPYRA [Concomitant]
  9. DITROPAN [Concomitant]
  10. LEVOTHYROXINE SODIUM [Concomitant]
  11. ADDERALL XR [Concomitant]
  12. PROVIGIL [Concomitant]
  13. NUEDEXTA [Concomitant]
  14. CYMBALTA [Concomitant]

REACTIONS (5)
  - Pain [Unknown]
  - Muscle spasms [Unknown]
  - Pain in extremity [Unknown]
  - Stress [Unknown]
  - Musculoskeletal stiffness [Unknown]
